FAERS Safety Report 5116172-X (Version None)
Quarter: 2006Q3

REPORT INFORMATION
  Report Type: 
  Country: None (occurrence: None)
  Receive Date: 20060927
  Receipt Date: 20060718
  Transmission Date: 20061208
  Serious: No
  Sender: FDA-Public Use
  Company Number: US-BRISTOL-MYERS SQUIBB COMPANY-13445572

PATIENT
  Age: 74 Year
  Sex: Female
  Weight: 131 kg

DRUGS (2)
  1. DEFINITY [Suspect]
     Indication: ECHOCARDIOGRAM
     Dates: start: 20060718, end: 20060718
  2. SODIUM CHLORIDE [Concomitant]
     Dates: start: 20060718, end: 20060718

REACTIONS (3)
  - BACK PAIN [None]
  - DIZZINESS [None]
  - ERYTHEMA [None]
